FAERS Safety Report 4713309-9 (Version None)
Quarter: 2005Q3

REPORT INFORMATION
  Report Type: 
  Country: None (occurrence: None)
  Receive Date: 20050713
  Receipt Date: 20050711
  Transmission Date: 20060218
  Serious: Yes (Hospitalization)
  Sender: FDA-Public Use
  Company Number: US-GLAXOSMITHKLINE-A0565762A

PATIENT
  Age: 80 Year
  Sex: Female

DRUGS (4)
  1. SEREVENT [Suspect]
     Indication: CHRONIC OBSTRUCTIVE PULMONARY DISEASE
     Dosage: 1PUFF UNKNOWN
     Route: 048
  2. ADVAIR DISKUS 100/50 [Suspect]
     Indication: CHRONIC OBSTRUCTIVE PULMONARY DISEASE
     Dosage: 1PUFF PER DAY
     Route: 055
     Dates: start: 20050401
  3. SPIRIVA [Concomitant]
  4. ACTONEL [Concomitant]

REACTIONS (4)
  - COUGH [None]
  - HAEMORRHAGE [None]
  - NASOPHARYNGITIS [None]
  - PHARYNGOLARYNGEAL PAIN [None]
